FAERS Safety Report 10161682 (Version 1)
Quarter: 2014Q2

REPORT INFORMATION
  Report Type: Spontaneous
  Country: US (occurrence: None)
  Receive Date: 20140508
  Receipt Date: 20140508
  Transmission Date: 20141212
  Serious: Yes (Disabling, Other)
  Sender: FDA-Public Use
  Company Number: None

PATIENT
  Age: 29 Year
  Sex: Female
  Weight: 65.77 kg

DRUGS (1)
  1. MIRENA [Suspect]

REACTIONS (27)
  - Palpitations [None]
  - Cold sweat [None]
  - Hot flush [None]
  - Tinnitus [None]
  - Vertigo [None]
  - Vision blurred [None]
  - Blindness [None]
  - Feeling abnormal [None]
  - Memory impairment [None]
  - Mood altered [None]
  - Suicidal ideation [None]
  - Arthralgia [None]
  - Muscle disorder [None]
  - Weight increased [None]
  - Abdominal distension [None]
  - Abdominal pain [None]
  - Dyspareunia [None]
  - Ovarian cyst ruptured [None]
  - Hypoaesthesia [None]
  - Paraesthesia [None]
  - Headache [None]
  - Alopecia [None]
  - Hair growth abnormal [None]
  - Acne cystic [None]
  - Heart rate increased [None]
  - Panic attack [None]
  - Impaired driving ability [None]
